FAERS Safety Report 10188818 (Version 2)
Quarter: 2014Q3

REPORT INFORMATION
  Report Type: Spontaneous
  Country: US (occurrence: US)
  Receive Date: 20140522
  Receipt Date: 20140807
  Transmission Date: 20150326
  Serious: Yes (Hospitalization)
  Sender: FDA-Public Use
  Company Number: US-B.I. PHARMACEUTICALS,INC./RIDGEFIELD-2014-BI-22226BP

PATIENT
  Age: 61 Year
  Sex: Female
  Weight: 53 kg

DRUGS (30)
  1. VENLAFAXINE [Concomitant]
     Active Substance: VENLAFAXINE HYDROCHLORIDE
     Dosage: 37.5 MG
     Route: 048
  2. AZITHROMYCIN [Concomitant]
     Active Substance: AZITHROMYCIN ANHYDROUS
     Dosage: 500 MG
     Route: 048
     Dates: start: 20140718, end: 20140718
  3. ACAISURGE WITH GREEN TEA [Concomitant]
     Route: 065
     Dates: end: 20140722
  4. ACETAMINOPHEN. [Concomitant]
     Active Substance: ACETAMINOPHEN
     Route: 048
  5. ASPIRIN. [Concomitant]
     Active Substance: ASPIRIN
     Dosage: 81 MG
     Route: 048
  6. FLUTICASONE [Concomitant]
     Active Substance: FLUTICASONE\FLUTICASONE PROPIONATE
     Dosage: 1 ANZ
     Route: 045
  7. GABAPENTIN. [Concomitant]
     Active Substance: GABAPENTIN
     Dosage: 6 ANZ
     Route: 048
     Dates: start: 20140401
  8. NABUMETONE. [Concomitant]
     Active Substance: NABUMETONE
     Indication: OSTEOARTHRITIS
     Dosage: 1000 MG
     Route: 048
     Dates: start: 20140630
  9. OMEPRAZOLE. [Concomitant]
     Active Substance: OMEPRAZOLE
     Dosage: 20 MG
     Route: 048
     Dates: start: 20140701
  10. PREDNISONE. [Concomitant]
     Active Substance: PREDNISONE
     Dosage: STRENGTH: 20 MG
     Route: 048
     Dates: start: 20140718
  11. SUN CHLORELLA [Concomitant]
     Active Substance: DIETARY SUPPLEMENT
     Dosage: 3000 MG
     Route: 065
  12. AZITHROMYCIN [Concomitant]
     Active Substance: AZITHROMYCIN ANHYDROUS
     Dosage: 250 MG
     Route: 048
     Dates: start: 20140719, end: 20140722
  13. ARIPIPRAZOLE [Concomitant]
     Active Substance: ARIPIPRAZOLE
     Dosage: 5 MG
     Route: 048
  14. BENZONATATE. [Concomitant]
     Active Substance: BENZONATATE
     Dosage: 300 MG
     Route: 048
  15. IPRATROPIUM-ALBUTEROL [Concomitant]
     Dosage: 18 ML
     Route: 050
     Dates: start: 20140509
  16. PREDNISONE. [Concomitant]
     Active Substance: PREDNISONE
     Dosage: STRENGTH: 20 MG
     Route: 048
  17. DIET PILL [Concomitant]
     Route: 065
     Dates: end: 20140722
  18. ALBUTEROL. [Concomitant]
     Active Substance: ALBUTEROL
     Dosage: 2 PUF
     Route: 055
  19. MIRTAZAPINE. [Concomitant]
     Active Substance: MIRTAZAPINE
     Dosage: 60 MG
     Route: 048
  20. COLON CLEANSE [Concomitant]
     Route: 065
     Dates: end: 20140722
  21. SPIRIVA [Suspect]
     Active Substance: TIOTROPIUM BROMIDE MONOHYDRATE
     Indication: CHRONIC OBSTRUCTIVE PULMONARY DISEASE
     Dosage: 18 MCG
     Route: 055
     Dates: start: 2009
  22. ADVAIR HFA [Concomitant]
     Active Substance: FLUTICASONE PROPIONATE\SALMETEROL XINAFOATE
     Dosage: 2 PUF
     Route: 055
     Dates: start: 20140422
  23. CYCLOBENZAPRINE [Concomitant]
     Active Substance: CYCLOBENZAPRINE
     Indication: MUSCLE SPASMS
     Dosage: 30 MG
     Route: 048
     Dates: start: 20140529
  24. PREDNISONE. [Concomitant]
     Active Substance: PREDNISONE
     Dosage: STRENGTH: 20 MG
     Route: 048
     Dates: start: 20140718
  25. TRAZODONE [Concomitant]
     Active Substance: TRAZODONE HYDROCHLORIDE
     Dosage: 2 ANZ
     Route: 048
     Dates: start: 20140619
  26. CARBOXYMETHYLCELL/HYPROMELLOSE [Concomitant]
     Dosage: DOSE PER APP: 1 DROP TO EACH EYE
     Route: 065
  27. LORAZEPAM. [Concomitant]
     Active Substance: LORAZEPAM
     Dosage: 3 MG
     Route: 048
  28. TIOTROPIUM [Concomitant]
     Active Substance: TIOTROPIUM
     Dosage: 18 MCG
     Route: 055
     Dates: start: 20140108
  29. INFLUENZA SEASONAL IMMUNIZATION [Concomitant]
     Route: 065
     Dates: start: 20131119
  30. MORPHINE [Concomitant]
     Active Substance: MORPHINE
     Indication: PAIN
     Route: 048
     Dates: start: 20140612, end: 20140724

REACTIONS (3)
  - Dyspnoea [Not Recovered/Not Resolved]
  - Chronic obstructive pulmonary disease [Recovered/Resolved]
  - Pneumonia [Recovered/Resolved]

NARRATIVE: CASE EVENT DATE: 20130810
